FAERS Safety Report 16348607 (Version 2)
Quarter: 2019Q2

REPORT INFORMATION
  Report Type: Spontaneous
  Country: FR (occurrence: FR)
  Receive Date: 20190523
  Receipt Date: 20190528
  Transmission Date: 20190711
  Serious: Yes (Hospitalization)
  Sender: FDA-Public Use
  Company Number: FR-JNJFOC-20190528541

PATIENT
  Age: 83 Year
  Sex: Male
  Weight: 71 kg

DRUGS (12)
  1. ZELITREX [Suspect]
     Active Substance: VALACYCLOVIR HYDROCHLORIDE
     Indication: HERPES ZOSTER
     Route: 048
     Dates: start: 201211, end: 20121130
  2. INEXIUM [Concomitant]
     Active Substance: ESOMEPRAZOLE
     Route: 065
  3. XATRAL [Concomitant]
     Active Substance: ALFUZOSIN
     Route: 065
  4. CRESTOR [Concomitant]
     Active Substance: ROSUVASTATIN CALCIUM
     Route: 065
  5. NOCTRAN [Suspect]
     Active Substance: ACEPROMAZINE MALEATE\ACEPROMETAZINE\CLORAZEPATE DIPOTASSIUM
     Indication: ANXIETY
     Route: 048
     Dates: end: 20121130
  6. APROVEL [Concomitant]
     Active Substance: IRBESARTAN
     Route: 065
  7. MODOPAR [Concomitant]
     Active Substance: BENSERAZIDE HYDROCHLORIDE\LEVODOPA
     Route: 065
  8. EXELON [Concomitant]
     Active Substance: RIVASTIGMINE TARTRATE
     Route: 065
  9. LAMICTAL [Concomitant]
     Active Substance: LAMOTRIGINE
     Route: 065
  10. RISPERDAL [Suspect]
     Active Substance: RISPERIDONE
     Indication: DEMENTIA WITH LEWY BODIES
     Route: 048
     Dates: end: 20121130
  11. ALPRAZOLAM. [Suspect]
     Active Substance: ALPRAZOLAM
     Indication: ANXIETY
     Route: 048
     Dates: end: 20121130
  12. MIANSERINE [Concomitant]
     Active Substance: MIANSERIN HYDROCHLORIDE
     Route: 065

REACTIONS (5)
  - Off label use [Unknown]
  - Somnolence [Recovered/Resolved]
  - Confusional state [Recovered/Resolved]
  - Product use in unapproved indication [Unknown]
  - Acute kidney injury [Recovered/Resolved]

NARRATIVE: CASE EVENT DATE: 20121130
